FAERS Safety Report 6561565-7 (Version None)
Quarter: 2010Q1

REPORT INFORMATION
  Report Type: 
  Country: None (occurrence: None)
  Receive Date: 20100130
  Receipt Date: 20091020
  Transmission Date: 20100710
  Serious: No
  Sender: FDA-Public Use
  Company Number: US-ABBOTT-09P-163-0604629-00

PATIENT
  Sex: Female
  Weight: 63.56 kg

DRUGS (4)
  1. HUMIRA [Suspect]
     Indication: PSORIASIS
     Route: 058
     Dates: start: 20080801, end: 20091001
  2. HUMIRA [Suspect]
     Route: 058
     Dates: start: 20091015
  3. TOPICAL CREAM [Concomitant]
     Indication: PSORIASIS
     Route: 061
  4. TOPAMAX [Concomitant]
     Indication: HEADACHE

REACTIONS (3)
  - EYE DISORDER [None]
  - VISUAL IMPAIRMENT [None]
  - VITREOUS FLOATERS [None]
